FAERS Safety Report 19780856 (Version 1)
Quarter: 2021Q3

REPORT INFORMATION
  Report Type: Spontaneous
  Country: US (occurrence: US)
  Receive Date: 20210903
  Receipt Date: 20210903
  Transmission Date: 20211014
  Serious: No
  Sender: FDA-Public Use
  Company Number: US-PURDUE-USA-2020-0178315

PATIENT

DRUGS (1)
  1. OXYCODONE/ ACETAMINOPHEN TABLETS [Suspect]
     Active Substance: ACETAMINOPHEN\OXYCODONE HYDROCHLORIDE
     Indication: PAIN
     Dosage: 10/325 MG
     Route: 048
     Dates: start: 20201020

REACTIONS (9)
  - Malaise [Unknown]
  - Discomfort [Unknown]
  - Drug ineffective [Unknown]
  - Drug withdrawal syndrome [Unknown]
  - Nausea [Unknown]
  - Hyperhidrosis [Unknown]
  - Diarrhoea [Unknown]
  - Abdominal pain upper [Unknown]
  - Vomiting [Unknown]

NARRATIVE: CASE EVENT DATE: 20201021
